FAERS Safety Report 5460984-X (Version None)
Quarter: 2007Q3

REPORT INFORMATION
  Report Type: 
  Country: None (occurrence: None)
  Receive Date: 20070822
  Receipt Date: 20060612
  Transmission Date: 20080115
  Serious: Yes (Other)
  Sender: FDA-Public Use
  Company Number: 2007019868

PATIENT

DRUGS (1)
  1. NORVASC [Suspect]

REACTIONS (1)
  - PANCREATITIS [None]
